FAERS Safety Report 10055009 (Version 5)
Quarter: 2014Q2

REPORT INFORMATION
  Report Type: Report from Study
  Country: AU (occurrence: AU)
  Receive Date: 20140402
  Receipt Date: 20140515
  Transmission Date: 20141212
  Serious: Yes (Hospitalization, Other)
  Sender: FDA-Public Use
  Company Number: PHHY2014AU039952

PATIENT
  Age: 81 Year
  Sex: Female

DRUGS (16)
  1. ACLASTA [Suspect]
     Indication: OSTEOPOROSIS
     Dosage: 5 MG, ANUAL
     Route: 042
     Dates: start: 20130214
  2. ACETIC ACID [Concomitant]
     Dosage: UNK UKN, UNK
  3. ALLEVYN AG [Concomitant]
     Dosage: UNK UKN, UNK
  4. AMITRIPTYLINE [Concomitant]
     Indication: NEURALGIA
     Dosage: 1 DF PRN
     Route: 048
  5. BENEFIBER [Concomitant]
     Dosage: 1 TEASPOON DAILY
  6. DI-GESIC [Concomitant]
     Dosage: 1 - 2 DF DAILY
  7. ENSURE [Concomitant]
     Dosage: 4 DF DAILY
  8. FESS [Concomitant]
     Dosage: UNK UKN, UNK
     Route: 045
  9. NORMISON [Concomitant]
     Indication: INSOMNIA
     Dosage: 1 DF DAILY
  10. OPTIVE [Concomitant]
     Indication: DRY EYE
     Dosage: 1 DRP THREE TIMES A DAY
  11. PANAMAX [Concomitant]
     Indication: PAIN
     Dosage: UNK, PRN
  12. PREDNEFRIN FORTE [Concomitant]
     Indication: EYE ALLERGY
     Dosage: UNK, BID
  13. SOFLAX [Concomitant]
     Indication: CONSTIPATION
     Dosage: 2 DF TWICE A DAY
  14. SOLPRIN [Concomitant]
     Indication: THROMBOSIS PROPHYLAXIS
     Dosage: 0.5 DF DAILY
  15. STEMETIL ^AVENTIS PHARMA^ [Concomitant]
     Indication: DIZZINESS
     Dosage: 1DF DAILY IF NEEDED
  16. XALACOM [Concomitant]
     Dosage: UNK UKN, UNK

REACTIONS (8)
  - Diverticulitis [Recovered/Resolved]
  - Gastrointestinal angiodysplasia [Unknown]
  - Occult blood positive [Unknown]
  - Neuralgia [Unknown]
  - Pneumonia [Unknown]
  - Intestinal perforation [Recovering/Resolving]
  - Abscess [Recovering/Resolving]
  - Constipation [Unknown]
